FAERS Safety Report 7386995 (Version 3)
Quarter: 2020Q3

REPORT INFORMATION
  Report Type: Report from Study
  Country: JP (occurrence: JP)
  Receive Date: 20090901
  Receipt Date: 20150903
  Transmission Date: 20201104
  Serious: Yes (Hospitalization)
  Sender: FDA-Public Use
  Company Number: JP-ROCHE-602844

PATIENT
  Age: 72 Year
  Sex: Female
  Weight: 48.9 kg

DRUGS (4)
  1. IBANDRONIC ACID. [Suspect]
     Active Substance: IBANDRONIC ACID
     Indication: OSTEOPOROSIS
     Route: 042
     Dates: start: 20070417, end: 20081208
  2. PLACEBO [Suspect]
     Active Substance: UNSPECIFIED INGREDIENT
     Indication: OSTEOPOROSIS
     Route: 048
     Dates: start: 20070417, end: 20081208
  3. SENNA [Concomitant]
     Active Substance: SENNA LEAF\SENNOSIDES\SENNOSIDES A AND B
     Indication: CONSTIPATION
     Dosage: FROM :GRANULATED POWDER
     Route: 048
  4. DEPAS (ETIZOLAM) [Concomitant]
     Active Substance: ETIZOLAM
     Indication: INSOMNIA
     Route: 048

REACTIONS (1)
  - Breast cancer [Recovering/Resolving]

NARRATIVE: CASE EVENT DATE: 20081203
